FAERS Safety Report 18657532 (Version 1)
Quarter: 2020Q4

REPORT INFORMATION
  Report Type: Spontaneous
  Country: US (occurrence: US)
  Receive Date: 20201223
  Receipt Date: 20201223
  Transmission Date: 20210114
  Serious: No
  Sender: FDA-Public Use
  Company Number: US-CURIUM-2020000521

PATIENT
  Age: 29 Year
  Sex: Female

DRUGS (1)
  1. I-123 CAPS, 200 UCI (SODIUM IODIDE) [Suspect]
     Active Substance: SODIUM IODIDE I-123
     Indication: SCAN THYROID GLAND
     Route: 048
     Dates: start: 20201208, end: 20201208

REACTIONS (2)
  - Drug ineffective [Not Recovered/Not Resolved]
  - Radioisotope scan abnormal [Not Recovered/Not Resolved]

NARRATIVE: CASE EVENT DATE: 20201208
